FAERS Safety Report 25185938 (Version 1)
Quarter: 2025Q2

REPORT INFORMATION
  Report Type: Spontaneous
  Country: CN (occurrence: CN)
  Receive Date: 20250410
  Receipt Date: 20250410
  Transmission Date: 20250717
  Serious: Yes (Life-Threatening, Hospitalization, Other)
  Sender: PURDUE
  Company Number: CN-NAPPMUNDI-GBR-2025-0124797

PATIENT
  Age: 92 Year
  Sex: Male
  Weight: 45 kg

DRUGS (1)
  1. MORPHINE SULFATE [Suspect]
     Active Substance: MORPHINE SULFATE
     Indication: Cancer pain
     Dosage: 20 MILLIGRAM, DAILY
     Route: 048
     Dates: start: 20250404, end: 20250404

REACTIONS (4)
  - Lethargy [Recovering/Resolving]
  - Unresponsive to stimuli [Recovering/Resolving]
  - Oxygen saturation decreased [Unknown]
  - Inappropriate schedule of product administration [Unknown]

NARRATIVE: CASE EVENT DATE: 20250404
